FAERS Safety Report 18282047 (Version 5)
Quarter: 2021Q3

REPORT INFORMATION
  Report Type: Spontaneous
  Country: US (occurrence: US)
  Receive Date: 20200918
  Receipt Date: 20210812
  Transmission Date: 20211014
  Serious: Yes (Hospitalization, Other)
  Sender: FDA-Public Use
  Company Number: US-SA-2020SA253701

PATIENT
  Age: 77 Year
  Sex: Male

DRUGS (1)
  1. ZANTAC [Suspect]
     Active Substance: RANITIDINE HYDROCHLORIDE
     Dosage: UNK
     Dates: start: 2004, end: 2018

REACTIONS (5)
  - Anxiety [Unknown]
  - Bladder cancer [Unknown]
  - Colorectal cancer [Unknown]
  - Adenocarcinoma of colon [Unknown]
  - Injury [Unknown]

NARRATIVE: CASE EVENT DATE: 20170614
